FAERS Safety Report 17779031 (Version 1)
Quarter: 2020Q2

REPORT INFORMATION
  Report Type: Spontaneous
  Country: CA (occurrence: CA)
  Receive Date: 20200513
  Receipt Date: 20200513
  Transmission Date: 20200714
  Serious: Yes (Hospitalization)
  Sender: FDA-Public Use
  Company Number: CA-TEVA-2020-CA-1234399

PATIENT
  Age: 64 Year
  Sex: Male
  Weight: 126 kg

DRUGS (21)
  1. SENNA [Concomitant]
     Active Substance: SENNA LEAF\SENNOSIDES\SENNOSIDES A AND B
  2. VALPROIC ACID. [Concomitant]
     Active Substance: VALPROIC ACID
  3. ZOPICLONE [Concomitant]
     Active Substance: ZOPICLONE
  4. ACETAMINOPHEN. [Concomitant]
     Active Substance: ACETAMINOPHEN
  5. OLANZAPINE. [Concomitant]
     Active Substance: OLANZAPINE
  6. CLONAZEPAM. [Suspect]
     Active Substance: CLONAZEPAM
     Route: 048
  7. LOXAPINE. [Concomitant]
     Active Substance: LOXAPINE
  8. MEDROXYPROGESTERONE [Concomitant]
     Active Substance: MEDROXYPROGESTERONE
     Route: 065
  9. CLONAZEPAM. [Suspect]
     Active Substance: CLONAZEPAM
     Indication: AGITATION
     Route: 048
  10. MACROGOL 3350 [Concomitant]
     Active Substance: POLYETHYLENE GLYCOL 3350
  11. CLONAZEPAM. [Suspect]
     Active Substance: CLONAZEPAM
     Dosage: 2 MILLIGRAM DAILY;
     Route: 048
  12. CLOBAZAM. [Concomitant]
     Active Substance: CLOBAZAM
     Route: 065
  13. ACETAZOLAMIDE. [Concomitant]
     Active Substance: ACETAZOLAMIDE
  14. TRIAMCINOLONE [Concomitant]
     Active Substance: TRIAMCINOLONE
  15. ZINC OXIDE. [Concomitant]
     Active Substance: ZINC OXIDE
  16. CLONAZEPAM. [Suspect]
     Active Substance: CLONAZEPAM
     Dosage: 3 MILLIGRAM DAILY;
     Route: 048
  17. CLONAZEPAM. [Suspect]
     Active Substance: CLONAZEPAM
     Route: 048
  18. LACTULOSE. [Concomitant]
     Active Substance: LACTULOSE
  19. ASPIRIN[ACETYLSALICYLIC ACID] [Concomitant]
  20. BISACODYL. [Concomitant]
     Active Substance: BISACODYL
  21. LAMOTRIGINE. [Concomitant]
     Active Substance: LAMOTRIGINE
     Route: 065

REACTIONS (2)
  - Somnolence [Unknown]
  - Pneumonia aspiration [Unknown]
